FAERS Safety Report 23533086 (Version 1)
Quarter: 2024Q1

REPORT INFORMATION
  Report Type: Spontaneous
  Country: US (occurrence: US)
  Receive Date: 20240216
  Receipt Date: 20240216
  Transmission Date: 20240410
  Serious: No
  Sender: FDA-Public Use
  Company Number: US-VERRICA PHARMACEUTICALS INC.-2023VER000006

PATIENT

DRUGS (1)
  1. YCANTH [Suspect]
     Active Substance: CANTHARIDIN
     Indication: Product used for unknown indication
     Dosage: 0.7 MG/ML, AS DIRECTED
     Route: 061
     Dates: start: 20231025

REACTIONS (1)
  - Blood blister [Unknown]

NARRATIVE: CASE EVENT DATE: 20231027
